FAERS Safety Report 10040004 (Version 1)
Quarter: 2014Q1

REPORT INFORMATION
  Report Type: Spontaneous
  Country: NO (occurrence: NO)
  Receive Date: 20140326
  Receipt Date: 20140326
  Transmission Date: 20141002
  Serious: Yes (Hospitalization, Other)
  Sender: FDA-Public Use
  Company Number: NO-009507513-1403NOR009049

PATIENT
  Age: 63 Year
  Sex: Male

DRUGS (11)
  1. EZETROL [Suspect]
     Indication: PRODUCT USED FOR UNKNOWN INDICATION
     Dosage: 10 MG, UNK
     Route: 048
     Dates: start: 201307, end: 201310
  2. SIMVASTATIN [Interacting]
     Indication: PRODUCT USED FOR UNKNOWN INDICATION
     Dosage: UNK MG, UNK
     Dates: start: 201207, end: 201310
  3. IMACILLIN [Interacting]
     Indication: INFECTION
     Dates: start: 20130621
  4. ERYMAX [Interacting]
     Indication: INFECTION
     Dosage: UNK
     Dates: start: 20130826, end: 20130828
  5. METOPROLOL [Concomitant]
  6. ALBYL-E [Concomitant]
     Dosage: TOTAL DAILY DOSE(SPECIFY UNITS) 75MGX1
  7. CETIRIZIN [Concomitant]
  8. FURIX [Concomitant]
     Dosage: TOTAL DAILY DOSE(SPECIFY UNITS)  20MGX1
  9. FLUTIDE [Concomitant]
     Dosage: TOTAL DAILY DOSE(SPECIFY UNITS) 50 MICROGRAM/DOSE
  10. MAREVAN [Concomitant]
     Indication: INTRACARDIAC THROMBUS
  11. RAMIPRIL [Concomitant]
     Dosage: TOTAL DAILY DOSE(SPECIFY UNITS)  5MGX1

REACTIONS (20)
  - Pneumonia [Recovered/Resolved]
  - Rhabdomyolysis [Recovering/Resolving]
  - Cardioversion [Unknown]
  - Paralysis [Unknown]
  - Drug level increased [Unknown]
  - Dyspnoea [Recovered/Resolved]
  - Drug interaction [Unknown]
  - Gait disturbance [Unknown]
  - Blood creatine phosphokinase increased [Recovered/Resolved]
  - Atrial fibrillation [Recovered/Resolved]
  - Medication error [Unknown]
  - Lung infiltration [Recovered/Resolved]
  - Overdose [Unknown]
  - C-reactive protein increased [Recovered/Resolved]
  - Pericardial effusion [Recovered/Resolved]
  - Respiratory tract infection [Unknown]
  - Weight decreased [Unknown]
  - Pleural effusion [Recovered/Resolved]
  - Productive cough [Recovered/Resolved]
  - Rhabdomyolysis [Recovered/Resolved]
